FAERS Safety Report 10029709 (Version 1)
Quarter: 2014Q1

REPORT INFORMATION
  Report Type: Spontaneous
  Country: US (occurrence: None)
  Receive Date: 20140321
  Receipt Date: 20140321
  Transmission Date: 20141002
  Serious: Yes (Other)
  Sender: FDA-Public Use
  Company Number: None

PATIENT
  Sex: 0

DRUGS (3)
  1. SUTENT [Suspect]
  2. TORISEL [Suspect]
  3. INLYTA [Suspect]

REACTIONS (5)
  - Blister [None]
  - Pericardial effusion [None]
  - Pleural effusion [None]
  - Vomiting [None]
  - Pulmonary oedema [None]
